FAERS Safety Report 7046499-6 (Version None)
Quarter: 2010Q4

REPORT INFORMATION
  Report Type: 
  Country: None (occurrence: None)
  Receive Date: 20101014
  Receipt Date: 20101004
  Transmission Date: 20110411
  Serious: Yes (Hospitalization, Other)
  Sender: FDA-Public Use
  Company Number: PHFR2010GB04581

PATIENT

DRUGS (1)
  1. ACLASTA [Suspect]
     Indication: HIP FRACTURE
     Dosage: UNK
     Dates: start: 20100820

REACTIONS (2)
  - CARDIAC DISORDER [None]
  - HYPERCALCAEMIA [None]
